FAERS Safety Report 5078693-8 (Version None)
Quarter: 2006Q3

REPORT INFORMATION
  Report Type: 
  Country: None (occurrence: None)
  Receive Date: 20060724
  Receipt Date: 20060508
  Transmission Date: 20061208
  Serious: Yes (Hospitalization)
  Sender: FDA-Public Use
  Company Number: 2006-BP-05124RO

PATIENT
  Age: 67 Year
  Sex: Female

DRUGS (9)
  1. LITHIUM CARBONATE [Suspect]
     Indication: BIPOLAR DISORDER
     Dosage: 450 MG BID (450 MG), PO
     Route: 048
     Dates: start: 20051101, end: 20060407
  2. LITHIUM CARBONATE [Suspect]
     Indication: BIPOLAR DISORDER
     Dosage: 450 MG BID (450 MG), PO
     Route: 048
     Dates: start: 20060330, end: 20060407
  3. MACROBID [Suspect]
     Indication: URINARY TRACT INFECTION
     Dosage: PO
     Route: 048
     Dates: start: 20060401, end: 20060407
  4. DEPAKOTE [Concomitant]
  5. PROTONIX [Concomitant]
  6. OXYTROL [Concomitant]
  7. COMBIPATCH (KLIOGEST /00686201/) [Concomitant]
  8. SYNTHROID [Concomitant]
  9. SELEGILINE (SELEGILINE) [Concomitant]

REACTIONS (1)
  - THERAPEUTIC AGENT TOXICITY [None]
